FAERS Safety Report 6131320-0 (Version None)
Quarter: 2009Q1

REPORT INFORMATION
  Report Type: 
  Country: None (occurrence: None)
  Receive Date: 20090325
  Receipt Date: 20080314
  Transmission Date: 20090719
  Serious: Yes (Other)
  Sender: FDA-Public Use
  Company Number: US-BRISTOL-MYERS SQUIBB COMPANY-14116388

PATIENT
  Sex: Male

DRUGS (3)
  1. ERBITUX [Suspect]
     Indication: HEAD AND NECK CANCER
     Dosage: 20 MINUTES OF INFUSION(APPROXIMATELY 50CC)
  2. BENADRYL [Concomitant]
  3. DECADRON [Concomitant]

REACTIONS (4)
  - ABNORMAL BEHAVIOUR [None]
  - HYPERTENSION [None]
  - HYPOXIA [None]
  - PRURITUS [None]
